FAERS Safety Report 9246391 (Version 1)
Quarter: 2013Q2

REPORT INFORMATION
  Report Type: Other
  Country: DK (occurrence: DK)
  Receive Date: 20130422
  Receipt Date: 20130422
  Transmission Date: 20140414
  Serious: Yes (Death)
  Sender: FDA-Public Use
  Company Number: DK-NICOBRDEVP-2013-05124

PATIENT
  Sex: Male

DRUGS (2)
  1. DONEPEZIL HYDROCHLORIDE (UNKNOWN) [Suspect]
     Indication: DEMENTIA
     Dosage: 5 MG, Q 2 DAYS
     Route: 065
     Dates: start: 20130102, end: 20130108
  2. COZAAR [Concomitant]
     Indication: HYPERTENSION
     Dosage: UNK, UNKNOWN
     Route: 065
     Dates: start: 20130109

REACTIONS (3)
  - Cardiac arrest [Fatal]
  - Hallucination [Fatal]
  - Fatigue [Fatal]
